FAERS Safety Report 19986506 (Version 2)
Quarter: 2021Q4

REPORT INFORMATION
  Report Type: Spontaneous
  Country: US (occurrence: US)
  Receive Date: 20211022
  Receipt Date: 20211201
  Transmission Date: 20220303
  Serious: Yes (Other)
  Sender: FDA-Public Use
  Company Number: US-PFIZER INC-202101352530

PATIENT
  Age: 55 Year
  Sex: Female
  Weight: 67.12 kg

DRUGS (2)
  1. CHANTIX [Suspect]
     Active Substance: VARENICLINE TARTRATE
     Indication: Smoking cessation therapy
     Dosage: 0.5+1 MG (STARTER PACK)
     Dates: start: 2020, end: 202004
  2. CHANTIX [Suspect]
     Active Substance: VARENICLINE TARTRATE
     Dosage: 0.5+1 MG (STARTER PACK)
     Dates: start: 20200513

REACTIONS (6)
  - Myocardial infarction [Recovered/Resolved]
  - Chest pain [Unknown]
  - Cardiac discomfort [Recovered/Resolved]
  - Musculoskeletal chest pain [Recovered/Resolved]
  - Abnormal dreams [Recovered/Resolved]
  - Recalled product administered [Unknown]

NARRATIVE: CASE EVENT DATE: 20200101
